FAERS Safety Report 22385842 (Version 2)
Quarter: 2023Q2

REPORT INFORMATION
  Report Type: Report from Study
  Country: US (occurrence: US)
  Receive Date: 20230530
  Receipt Date: 20230605
  Transmission Date: 20230721
  Serious: No
  Sender: FDA-Public Use
  Company Number: US-002147023-NVSC2023US121314

PATIENT
  Age: 68 Year
  Sex: Female

DRUGS (2)
  1. MAYZENT [Suspect]
     Active Substance: SIPONIMOD
     Indication: Product used for unknown indication
     Dosage: 2 MG, QD, (STARTER PACK ON SUNDAY)
     Route: 048
     Dates: start: 20230514
  2. MAYZENT [Suspect]
     Active Substance: SIPONIMOD
     Dosage: UNK, (MAINTENANCE DOSE ON FRIDAY)
     Route: 065
     Dates: start: 20230519

REACTIONS (3)
  - Alopecia [Unknown]
  - Rash erythematous [Unknown]
  - Peripheral swelling [Unknown]

NARRATIVE: CASE EVENT DATE: 20230522
